FAERS Safety Report 16612855 (Version 5)
Quarter: 2019Q4

REPORT INFORMATION
  Report Type: Spontaneous
  Country: GB (occurrence: GB)
  Receive Date: 20190722
  Receipt Date: 20191209
  Transmission Date: 20200122
  Serious: Yes (Other)
  Sender: FDA-Public Use
  Company Number: PHHY2019GB166441

PATIENT
  Age: 70 Year
  Sex: Male
  Weight: 105 kg

DRUGS (20)
  1. BENDAMUSTINE HYDROCHLORIDE. [Suspect]
     Active Substance: BENDAMUSTINE HYDROCHLORIDE
     Indication: CHRONIC LYMPHOCYTIC LEUKAEMIA
     Dosage: 330 MG, CYCLIC (PER PROTOCOL (MONTHLY)
     Route: 042
     Dates: start: 20150714, end: 20151222
  2. 5 FLUOROURACIL [Concomitant]
     Active Substance: FLUOROURACIL
     Indication: SCAR
     Dosage: 1 OT, QD
     Route: 061
     Dates: start: 20180919
  3. HYPROMELLOSE [Concomitant]
     Active Substance: HYPROMELLOSES
     Dosage: 1 GTT (1/12 MILLILITRE)
     Route: 047
     Dates: start: 20151222
  4. ALLOPURINOL. [Concomitant]
     Active Substance: ALLOPURINOL
     Indication: GOUT
     Dosage: 100 MG, QD
     Route: 048
  5. HYPROMELLOSE [Concomitant]
     Active Substance: HYPROMELLOSES
     Indication: DRY EYE
     Dosage: 1 GTT
     Route: 047
  6. IRBESARTAN AND HYDROCHLOROTHIAZIDE [Concomitant]
     Active Substance: HYDROCHLOROTHIAZIDE\IRBESARTAN
     Indication: HYPERTENSION
     Dosage: 312.5 MG, QD
     Route: 048
  7. APIXABAN [Concomitant]
     Active Substance: APIXABAN
     Indication: ANTICOAGULANT THERAPY
     Dosage: 5 MG, QD
     Route: 048
     Dates: start: 20150715
  8. OFATUMUMAB [Suspect]
     Active Substance: OFATUMUMAB
     Indication: CHRONIC LYMPHOCYTIC LEUKAEMIA
     Dosage: 1000 MG, QMO
     Route: 042
     Dates: start: 20150714, end: 20151222
  9. SILDENAFIL. [Concomitant]
     Active Substance: SILDENAFIL
     Indication: ERECTILE DYSFUNCTION
     Dosage: 50 MG
     Route: 048
  10. CETRABEN [Concomitant]
     Active Substance: PARAFFIN
     Indication: ECZEMA
     Dosage: PRN
     Route: 061
     Dates: start: 20080615
  11. OTOMIZE [Concomitant]
     Active Substance: DEXAMETHASONE\NEOMYCIN SULFATE
     Dosage: UNK
     Route: 061
  12. THIAMINE. [Concomitant]
     Active Substance: THIAMINE
     Indication: SUPPLEMENTATION THERAPY
     Dosage: 50 MG, QD
     Route: 048
     Dates: start: 20150611
  13. MOMETASONE [Concomitant]
     Active Substance: MOMETASONE
     Indication: SEASONAL ALLERGY
     Dosage: 50 UG
     Route: 061
  14. OTOMIZE [Concomitant]
     Active Substance: DEXAMETHASONE\NEOMYCIN SULFATE
     Indication: EAR INFECTION
     Dosage: UNK, PRN
     Route: 061
  15. LEVOTHYROXINE. [Concomitant]
     Active Substance: LEVOTHYROXINE
     Indication: HYPERTENSION
     Dosage: 75 MG, QD
     Route: 048
     Dates: start: 20140215
  16. G-CSF [Concomitant]
     Active Substance: GRANULOCYTE COLONY-STIMULATING FACTOR NOS
     Indication: PRODUCT USED FOR UNKNOWN INDICATION
     Dosage: UNK
     Route: 065
  17. CETRABEN [Concomitant]
     Active Substance: PARAFFIN
     Indication: PSORIASIS
  18. LEVOTHYROXINE. [Concomitant]
     Active Substance: LEVOTHYROXINE
     Indication: HYPOTHYROIDISM
     Dosage: 75 MG, QD
     Route: 048
     Dates: start: 20190215
  19. AMLODIPINE [Concomitant]
     Active Substance: AMLODIPINE BESYLATE
     Indication: HYPERTENSION
     Dosage: 5 MG, QD (ANTICOAGULANT AND PRESERVATIVE SOLUTION FOR BLOOD)
     Route: 048
     Dates: start: 20090615
  20. CAPASAL [Concomitant]
     Indication: PSORIASIS
     Dosage: 1 OT, QD
     Route: 061
     Dates: start: 20080615

REACTIONS (9)
  - Squamous cell carcinoma of skin [Recovered/Resolved]
  - Squamous cell carcinoma of skin [Recovered/Resolved]
  - External ear neoplasm malignant [Recovered/Resolved]
  - Squamous cell carcinoma of skin [Recovered/Resolved]
  - Squamous cell carcinoma of skin [Recovered/Resolved]
  - Squamous cell carcinoma of skin [Recovered/Resolved]
  - Squamous cell carcinoma of skin [Recovered/Resolved]
  - Squamous cell carcinoma of skin [Recovered/Resolved]
  - Squamous cell carcinoma of skin [Recovered/Resolved]

NARRATIVE: CASE EVENT DATE: 20160923
